FAERS Safety Report 16248809 (Version 2)
Quarter: 2019Q2

REPORT INFORMATION
  Report Type: Spontaneous
  Country: US (occurrence: US)
  Receive Date: 20190429
  Receipt Date: 20190509
  Transmission Date: 20190711
  Serious: Yes (Other)
  Sender: FDA-Public Use
  Company Number: US-BEH-2019101536

PATIENT
  Age: 64 Year
  Sex: Female
  Weight: 67.6 kg

DRUGS (2)
  1. RIASTAP [Suspect]
     Active Substance: FIBRINOGEN HUMAN
     Indication: COAGULOPATHY
     Dosage: 2300 MG, UNK
     Route: 042
     Dates: start: 20190415
  2. RIASTAP [Suspect]
     Active Substance: FIBRINOGEN HUMAN
     Indication: PROPHYLAXIS

REACTIONS (5)
  - Dizziness [Recovered/Resolved]
  - Cough [Recovered/Resolved]
  - Tachycardia [Recovered/Resolved]
  - Pharyngeal paraesthesia [Recovered/Resolved]
  - Blood pressure increased [Recovered/Resolved]

NARRATIVE: CASE EVENT DATE: 20190415
